FAERS Safety Report 6168478-3 (Version None)
Quarter: 2009Q2

REPORT INFORMATION
  Report Type: 
  Country: None (occurrence: None)
  Receive Date: 20090427
  Receipt Date: 20090421
  Transmission Date: 20091009
  Serious: Yes (Hospitalization)
  Sender: FDA-Public Use
  Company Number: A0779679A

PATIENT
  Age: 70 Year
  Sex: Female

DRUGS (5)
  1. AVANDIA [Suspect]
     Dosage: 8MG PER DAY
     Route: 048
     Dates: start: 20060301, end: 20080701
  2. ACCUPRIL [Concomitant]
  3. AMLODIPINE [Concomitant]
  4. METOPROLOL SUCCINATE [Concomitant]
  5. LIPITOR [Concomitant]

REACTIONS (4)
  - BLOOD GLUCOSE INCREASED [None]
  - HEADACHE [None]
  - VOMITING [None]
  - WEIGHT DECREASED [None]
